FAERS Safety Report 25109023 (Version 1)
Quarter: 2025Q1

REPORT INFORMATION
  Report Type: Spontaneous
  Country: US (occurrence: US)
  Receive Date: 20250322
  Receipt Date: 20250322
  Transmission Date: 20250409
  Serious: Yes (Other)
  Sender: AMGEN
  Company Number: US-AMGEN-USASP2025054961

PATIENT
  Age: 20 Year
  Sex: Male

DRUGS (5)
  1. PREDNISONE [Suspect]
     Active Substance: PREDNISONE
     Indication: Retinal vasculitis
     Dosage: 60 MILLIGRAM, QD
     Route: 048
  2. PREDNISONE [Suspect]
     Active Substance: PREDNISONE
     Indication: Epstein-Barr virus infection
  3. METHYLPREDNISOLONE [Concomitant]
     Active Substance: METHYLPREDNISOLONE
     Route: 040
  4. ACYCLOVIR [Concomitant]
     Active Substance: ACYCLOVIR
     Route: 040
  5. VALACYCLOVIR [Concomitant]
     Active Substance: VALACYCLOVIR HYDROCHLORIDE
     Dosage: 1 GRAM, TID
     Route: 048

REACTIONS (6)
  - Optic neuritis [Recovered/Resolved]
  - Uveitis [Recovered/Resolved]
  - Epstein-Barr virus infection reactivation [Unknown]
  - Retinal vasculitis [Unknown]
  - Drug effective for unapproved indication [Unknown]
  - Off label use [Unknown]
